FAERS Safety Report 5667942-0 (Version None)
Quarter: 2008Q1

REPORT INFORMATION
  Report Type: 
  Country: None (occurrence: None)
  Receive Date: 20080315
  Receipt Date: 20080208
  Transmission Date: 20080703
  Serious: No
  Sender: FDA-Public Use
  Company Number: US-ABBOTT-08P-163-0437607-00

PATIENT
  Sex: Female
  Weight: 84.898 kg

DRUGS (20)
  1. HUMIRA [Suspect]
     Indication: CROHN'S DISEASE
     Route: 058
  2. HUMIRA [Suspect]
     Route: 058
  3. HUMIRA [Suspect]
     Route: 058
     Dates: start: 20070401, end: 20070401
  4. ACTOCORT [Concomitant]
     Indication: DRUG USE FOR UNKNOWN INDICATION
     Route: 061
  5. SINIMENT [Concomitant]
     Indication: PARKINSON'S DISEASE
     Route: 048
  6. ATORVASTATIN CALCIUM [Concomitant]
     Indication: BLOOD CHOLESTEROL INCREASED
     Route: 048
  7. METOPROLOL TARTRATE [Concomitant]
     Indication: BLOOD PRESSURE
     Route: 048
  8. CLONAZEPAM [Concomitant]
     Indication: PARKINSON'S DISEASE
     Route: 048
  9. ISORORBIDE [Concomitant]
     Indication: CORONARY ARTERY DISEASE
     Route: 048
  10. ESOMEPRAZOLE MAGNESIUM [Concomitant]
     Indication: GASTRIC DISORDER
     Route: 048
  11. FLONASE [Concomitant]
     Indication: ASTHMA
     Route: 055
  12. FLONASE [Concomitant]
     Indication: CHRONIC OBSTRUCTIVE PULMONARY DISEASE
  13. ADVAIR DISKUS 100/50 [Concomitant]
     Indication: ASTHMA
     Route: 055
  14. ADVAIR DISKUS 100/50 [Concomitant]
     Indication: CHRONIC OBSTRUCTIVE PULMONARY DISEASE
  15. SPIRITAIR [Concomitant]
     Indication: ASTHMA
     Route: 055
  16. SPIRITAIR [Concomitant]
     Indication: CHRONIC OBSTRUCTIVE PULMONARY DISEASE
  17. INTEX LA [Concomitant]
     Indication: NASAL DECONGESTION THERAPY
     Route: 048
  18. CLOPIDOGREL [Concomitant]
     Indication: CORONARY ARTERY DISEASE
     Route: 048
  19. PROPACET 100 [Concomitant]
     Indication: PAIN MANAGEMENT
     Route: 048
  20. PRIMIDONE [Concomitant]
     Indication: DEPRESSION
     Route: 048

REACTIONS (1)
  - HERPES ZOSTER [None]
